FAERS Safety Report 13363192 (Version 1)
Quarter: 2017Q1

REPORT INFORMATION
  Report Type: Spontaneous
  Country: US (occurrence: US)
  Receive Date: 20170322
  Receipt Date: 20170322
  Transmission Date: 20170429
  Serious: No
  Sender: FDA-Public Use
  Company Number: None

PATIENT
  Age: 64 Year
  Sex: Female

DRUGS (4)
  1. COPAXONE [Suspect]
     Active Substance: GLATIRAMER ACETATE
     Indication: MAJOR DEPRESSION
  2. COPAXONE [Suspect]
     Active Substance: GLATIRAMER ACETATE
     Indication: NEURALGIA
  3. COPAXONE [Suspect]
     Active Substance: GLATIRAMER ACETATE
     Indication: PAIN
  4. COPAXONE [Suspect]
     Active Substance: GLATIRAMER ACETATE
     Indication: MULTIPLE SCLEROSIS

REACTIONS (1)
  - Injection site bruising [None]

NARRATIVE: CASE EVENT DATE: 20170322
